FAERS Safety Report 12250566 (Version 1)
Quarter: 2016Q2

REPORT INFORMATION
  Report Type: Report from Study
  Country: CA (occurrence: CA)
  Receive Date: 20160408
  Receipt Date: 20160408
  Transmission Date: 20160815
  Serious: Yes (Hospitalization)
  Sender: FDA-Public Use
  Company Number: CA-EXELIXIS-XL18416006206

PATIENT
  Age: 59 Year
  Sex: Female

DRUGS (1)
  1. XL184 [Suspect]
     Active Substance: CABOZANTINIB
     Indication: ENDOMETRIAL STROMAL SARCOMA
     Dosage: 60 MG, QD
     Route: 048
     Dates: start: 20160126

REACTIONS (3)
  - Back pain [Not Recovered/Not Resolved]
  - Ileal perforation [Not Recovered/Not Resolved]
  - Pelvic pain [Not Recovered/Not Resolved]

NARRATIVE: CASE EVENT DATE: 20160201
